FAERS Safety Report 25998268 (Version 1)
Quarter: 2025Q4

REPORT INFORMATION
  Report Type: Spontaneous
  Country: US (occurrence: US)
  Receive Date: 20251105
  Receipt Date: 20251105
  Transmission Date: 20260118
  Serious: No
  Sender: GILEAD
  Company Number: US-GILEAD-2025-0734609

PATIENT
  Age: 5 Month

DRUGS (2)
  1. LIVDELZI [Suspect]
     Active Substance: SELADELPAR LYSINE
     Indication: Product used for unknown indication
     Route: 063
  2. URSO [Concomitant]
     Active Substance: URSODIOL
     Route: 063

REACTIONS (1)
  - Exposure via breast milk [Not Recovered/Not Resolved]
